FAERS Safety Report 18169869 (Version 2)
Quarter: 2021Q3

REPORT INFORMATION
  Report Type: Spontaneous
  Country: CA (occurrence: CA)
  Receive Date: 20200819
  Receipt Date: 20210805
  Transmission Date: 20211014
  Serious: Yes (Life-Threatening, Hospitalization, Other)
  Sender: FDA-Public Use
  Company Number: CA-ACCORD-195829

PATIENT
  Age: 2 Year
  Sex: Male
  Weight: 13 kg

DRUGS (22)
  1. ETOPOSIDE. [Suspect]
     Active Substance: ETOPOSIDE
     Indication: CENTRAL NERVOUS SYSTEM NEUROBLASTOMA
     Route: 042
  2. ONDANSETRON [Concomitant]
     Active Substance: ONDANSETRON
  3. SODIUM [Concomitant]
     Active Substance: SODIUM
  4. DIMENHYDRINATE. [Concomitant]
     Active Substance: DIMENHYDRINATE
     Dosage: DOSAGE FORM: LIQUID INTRAVENOUS
  5. MOMETASONE [Concomitant]
     Active Substance: MOMETASONE
  6. CALCIUM\ERGOCALCIFEROL [Concomitant]
     Active Substance: CALCIUM\ERGOCALCIFEROL
  7. FUROSEMIDE. [Concomitant]
     Active Substance: FUROSEMIDE
  8. CISPLATIN. [Suspect]
     Active Substance: CISPLATIN
     Indication: CENTRAL NERVOUS SYSTEM NEUROBLASTOMA
     Dosage: CISPLATIN INJECTION, SOLUTION INTRAVENOUS
     Route: 042
  9. EMEND [Concomitant]
     Active Substance: APREPITANT
  10. VINCRISTINE [Suspect]
     Active Substance: VINCRISTINE
     Indication: CENTRAL NERVOUS SYSTEM NEUROBLASTOMA
     Route: 042
  11. AMLODIPINE [Concomitant]
     Active Substance: AMLODIPINE BESYLATE
  12. AMOXICILLIN/CLAVULANATE POTASSIUM [Concomitant]
     Active Substance: AMOXICILLIN\CLAVULANATE POTASSIUM
  13. FILGRASTIM [Concomitant]
     Active Substance: FILGRASTIM
  14. TOCOPHEROL [Concomitant]
     Active Substance: TOCOPHEROL
  15. PARACETAMOL [Concomitant]
     Active Substance: ACETAMINOPHEN
  16. MAGNESIUM [Concomitant]
     Active Substance: MAGNESIUM
  17. CYCLOPHOSPHAMIDE/CYCLOPHOSPHAMIDE MONOHYDRATE [Suspect]
     Active Substance: CYCLOPHOSPHAMIDE
     Indication: CENTRAL NERVOUS SYSTEM NEUROBLASTOMA
     Route: 042
  18. DIPHENHYDRAMINE. [Concomitant]
     Active Substance: DIPHENHYDRAMINE
  19. SULFAMETHOXAZOLE/TRIMETHOPRIM [Concomitant]
     Active Substance: SULFAMETHOXAZOLE\TRIMETHOPRIM
  20. LEVETIRACETAM. [Concomitant]
     Active Substance: LEVETIRACETAM
  21. MESNA. [Concomitant]
     Active Substance: MESNA
  22. METOCLOPRAMIDE. [Concomitant]
     Active Substance: METOCLOPRAMIDE

REACTIONS (9)
  - Febrile neutropenia [Recovered/Resolved]
  - Transfusion [Recovered/Resolved]
  - Vomiting [Recovered/Resolved]
  - Thrombocytopenia [Recovered/Resolved]
  - Pancytopenia [Recovered/Resolved]
  - Aplasia [Recovered/Resolved]
  - Haematemesis [Recovered/Resolved]
  - Platelet transfusion [Recovered/Resolved]
  - Aplastic anaemia [Recovered/Resolved]
